FAERS Safety Report 25071954 (Version 1)
Quarter: 2025Q1

REPORT INFORMATION
  Report Type: Report from Study
  Country: US (occurrence: US)
  Receive Date: 20250313
  Receipt Date: 20250313
  Transmission Date: 20250409
  Serious: Yes (Other)
  Sender: ALEXION PHARMACEUTICALS
  Company Number: US-AstraZeneca-CH-00822322AP

PATIENT

DRUGS (2)
  1. BUDESONIDE\FORMOTEROL\GLYCOPYRRONIUM [Suspect]
     Active Substance: BUDESONIDE\FORMOTEROL\GLYCOPYRRONIUM
  2. ROFLUMILAST [Suspect]
     Active Substance: ROFLUMILAST
     Route: 065

REACTIONS (4)
  - Blindness [Unknown]
  - Device use issue [Unknown]
  - Drug dose omission by device [Unknown]
  - Device delivery system issue [Unknown]
